FAERS Safety Report 13637746 (Version 3)
Quarter: 2017Q4

REPORT INFORMATION
  Report Type: Spontaneous
  Country: JP (occurrence: JP)
  Receive Date: 20170609
  Receipt Date: 20171114
  Transmission Date: 20180320
  Serious: Yes (Disabling, Other)
  Sender: FDA-Public Use
  Company Number: JP-009507513-1706JPN000310J

PATIENT
  Age: 63 Year
  Sex: Male

DRUGS (1)
  1. ESLAX INTRAVENOUS 50MG/5.0ML [Suspect]
     Active Substance: ROCURONIUM BROMIDE
     Dosage: UNK
     Route: 051
     Dates: start: 201602, end: 201602

REACTIONS (3)
  - Mental impairment [Unknown]
  - Anaphylactic shock [Unknown]
  - Hypoxic-ischaemic encephalopathy [Unknown]
